FAERS Safety Report 7928126-6 (Version None)
Quarter: 2011Q4

REPORT INFORMATION
  Report Type: 
  Country: None (occurrence: None)
  Receive Date: 20111118
  Receipt Date: 20111115
  Transmission Date: 20120403
  Serious: Yes (Other)
  Sender: FDA-Public Use
  Company Number: GB-PFIZER INC-2011279311

PATIENT
  Sex: Male

DRUGS (1)
  1. SERTRALINE HYDROCHLORIDE [Suspect]

REACTIONS (11)
  - OBSESSIVE-COMPULSIVE DISORDER [None]
  - DIARRHOEA [None]
  - NIGHT SWEATS [None]
  - MENTAL IMPAIRMENT [None]
  - NECK PAIN [None]
  - FATIGUE [None]
  - FEELING COLD [None]
  - INSOMNIA [None]
  - MUSCULOSKELETAL CHEST PAIN [None]
  - WEIGHT INCREASED [None]
  - HEADACHE [None]
